FAERS Safety Report 14584168 (Version 1)
Quarter: 2018Q1

REPORT INFORMATION
  Report Type: Other
  Country: US (occurrence: US)
  Receive Date: 20180228
  Receipt Date: 20180228
  Transmission Date: 20180509
  Serious: Yes (Other)
  Sender: FDA-Public Use
  Company Number: US-EXELTIS USA INC.-2042750

PATIENT
  Sex: Female

DRUGS (1)
  1. PREGNITUDE [Suspect]
     Active Substance: DIETARY SUPPLEMENT
     Indication: MANAGEMENT OF REPRODUCTION

REACTIONS (1)
  - Abortion spontaneous [Unknown]
